FAERS Safety Report 9665454 (Version 1)
Quarter: 2013Q4

REPORT INFORMATION
  Report Type: Spontaneous
  Country: US (occurrence: US)
  Receive Date: 20131104
  Receipt Date: 20131104
  Transmission Date: 20140711
  Serious: No
  Sender: FDA-Public Use
  Company Number: US-PFIZER INC-2013310476

PATIENT
  Age: 36 Year
  Sex: Female
  Weight: 143 kg

DRUGS (13)
  1. CHANTIX [Suspect]
     Indication: SMOKING CESSATION THERAPY
     Dosage: 0.5 MG, 2X/DAY
     Dates: start: 201310, end: 201310
  2. CHANTIX [Suspect]
     Dosage: 1 MG, 2X/DAY
     Dates: start: 201310
  3. ABILIFY [Concomitant]
     Indication: BIPOLAR DISORDER
     Dosage: 25 MG, DAILY
  4. DIVALPROEX [Concomitant]
     Indication: BIPOLAR DISORDER
     Dosage: UNK, 1X/DAY
     Route: 048
  5. PRAVASTATIN SODIUM [Concomitant]
     Dosage: 20 MG, DAILY
  6. GLIPIZIDE [Concomitant]
     Dosage: 10 MG, DAILY
  7. LISINOPRIL W/HYDROCHLOROTHIAZIDE [Concomitant]
     Dosage: 10 MG/12.5 MG, DAILY
  8. ZOLPIDEM [Concomitant]
     Indication: SLEEP DISORDER
     Dosage: 10 MG, AS NEEDED
  9. INSULIN [Concomitant]
     Dosage: 15 IU, DAILY
  10. VITAMIN D3 [Concomitant]
     Indication: SUPPLEMENTATION THERAPY
     Dosage: 1000 IU, 2X/DAY
  11. VITAMIN B12 [Concomitant]
     Indication: SUPPLEMENTATION THERAPY
     Dosage: UNK, 1X/DAY
  12. CYCLOBENZAPRINE [Concomitant]
     Dosage: 10 MG, 2X/DAY
  13. TRAMADOL [Concomitant]
     Indication: BACK PAIN
     Dosage: 50 MG, UNK

REACTIONS (1)
  - Drug ineffective [Unknown]
